FAERS Safety Report 22342913 (Version 5)
Quarter: 2023Q2

REPORT INFORMATION
  Report Type: Report from Study
  Country: BR (occurrence: BR)
  Receive Date: 20230519
  Receipt Date: 20230623
  Transmission Date: 20230721
  Serious: Yes (Disabling, Other)
  Sender: FDA-Public Use
  Company Number: BR-ABBVIE-4338094

PATIENT
  Age: 63 Year
  Sex: Female
  Weight: 60 kg

DRUGS (1)
  1. RINVOQ [Suspect]
     Active Substance: UPADACITINIB
     Indication: Rheumatoid arthritis
     Dosage: FORM STRENGTH:15 MILLIGRAM
     Route: 048
     Dates: start: 20211206, end: 202211

REACTIONS (35)
  - Paralysis [Not Recovered/Not Resolved]
  - Rheumatic fever [Not Recovered/Not Resolved]
  - Trigger finger [Not Recovered/Not Resolved]
  - Illness [Not Recovered/Not Resolved]
  - Pain [Not Recovered/Not Resolved]
  - Drug dependence [Unknown]
  - Feeling hot [Not Recovered/Not Resolved]
  - Joint range of motion decreased [Unknown]
  - Presyncope [Not Recovered/Not Resolved]
  - Gait disturbance [Unknown]
  - Peripheral coldness [Not Recovered/Not Resolved]
  - Mobility decreased [Not Recovered/Not Resolved]
  - Peripheral swelling [Not Recovered/Not Resolved]
  - Neck pain [Not Recovered/Not Resolved]
  - Rheumatoid arthritis [Not Recovered/Not Resolved]
  - Weight decreased [Not Recovered/Not Resolved]
  - Decreased appetite [Recovered/Resolved]
  - Limb discomfort [Unknown]
  - Pain in extremity [Not Recovered/Not Resolved]
  - Musculoskeletal disorder [Unknown]
  - Blister [Unknown]
  - Suicidal ideation [Not Recovered/Not Resolved]
  - Bone pain [Not Recovered/Not Resolved]
  - Grip strength decreased [Unknown]
  - Insomnia [Not Recovered/Not Resolved]
  - Erythema [Not Recovered/Not Resolved]
  - Atrophy [Not Recovered/Not Resolved]
  - Weight gain poor [Unknown]
  - Rheumatic disorder [Unknown]
  - Loss of personal independence in daily activities [Not Recovered/Not Resolved]
  - Crying [Unknown]
  - Screaming [Not Recovered/Not Resolved]
  - Oedema [Not Recovered/Not Resolved]
  - Gait inability [Not Recovered/Not Resolved]
  - Musculoskeletal stiffness [Unknown]

NARRATIVE: CASE EVENT DATE: 20220101
